FAERS Safety Report 15817755 (Version 1)
Quarter: 2019Q1

REPORT INFORMATION
  Report Type: Spontaneous
  Country: US (occurrence: US)
  Receive Date: 20190113
  Receipt Date: 20190113
  Transmission Date: 20190417
  Serious: No
  Sender: FDA-Public Use
  Company Number: US-009507513-1901USA003483

PATIENT
  Sex: Female

DRUGS (7)
  1. BENTYL [Concomitant]
     Active Substance: DICYCLOMINE HYDROCHLORIDE
  2. ALLEGRA ALLERGY [Concomitant]
     Active Substance: FEXOFENADINE HYDROCHLORIDE
  3. JANUVIA [Suspect]
     Active Substance: SITAGLIPTIN PHOSPHATE
     Dosage: UNK
     Route: 048
     Dates: start: 201812, end: 20190108
  4. METOPROLOL. [Concomitant]
     Active Substance: METOPROLOL
  5. XANAX [Concomitant]
     Active Substance: ALPRAZOLAM
  6. DILTIAZEM. [Concomitant]
     Active Substance: DILTIAZEM
  7. DICLOFENAC [Concomitant]
     Active Substance: DICLOFENAC

REACTIONS (2)
  - Myalgia [Unknown]
  - Sciatica [Unknown]
